FAERS Safety Report 8082525-3 (Version None)
Quarter: 2012Q1

REPORT INFORMATION
  Report Type: 
  Country: None (occurrence: None)
  Receive Date: 20120127
  Receipt Date: 20110218
  Transmission Date: 20120608
  Serious: No
  Sender: FDA-Public Use
  Company Number: US-ABBOTT-11P-163-0706738-00

PATIENT
  Sex: Female
  Weight: 68.1 kg

DRUGS (5)
  1. CRESTOR [Concomitant]
     Indication: BLOOD CHOLESTEROL INCREASED
  2. HUMIRA [Suspect]
     Indication: RHEUMATOID ARTHRITIS
     Dates: start: 20100501, end: 20101201
  3. DOXYCYCLINE [Concomitant]
     Indication: SKIN INFECTION
  4. CYMBALTA [Concomitant]
     Indication: DEPRESSION
  5. HUMIRA [Suspect]
     Dates: start: 20110101

REACTIONS (1)
  - SKIN INFECTION [None]
